FAERS Safety Report 13822056 (Version 1)
Quarter: 2017Q3

REPORT INFORMATION
  Report Type: Spontaneous
  Country: US (occurrence: US)
  Receive Date: 20170801
  Receipt Date: 20170801
  Transmission Date: 20171127
  Serious: No
  Sender: FDA-Public Use
  Company Number: None

PATIENT
  Age: 61 Year
  Sex: Female
  Weight: 86.64 kg

DRUGS (5)
  1. LEVOTHYROXINE. [Concomitant]
     Active Substance: LEVOTHYROXINE
  2. PRAVASTATIN. [Concomitant]
     Active Substance: PRAVASTATIN
  3. TIROSINT [Suspect]
     Active Substance: LEVOTHYROXINE SODIUM
     Indication: HYPOTHYROIDISM
     Dosage: ?          QUANTITY:I PILL Q CLAY;?
     Route: 048
     Dates: start: 20170508
  4. LISINOPRIL. [Concomitant]
     Active Substance: LISINOPRIL
  5. LOW DOSE ASPIRIN [Concomitant]
     Active Substance: ASPIRIN

REACTIONS (7)
  - Deformity [None]
  - Pain [None]
  - Rash macular [None]
  - Rash [None]
  - Pruritus [None]
  - Pyrexia [None]
  - Rash erythematous [None]

NARRATIVE: CASE EVENT DATE: 20170721
